FAERS Safety Report 12777919 (Version 1)
Quarter: 2016Q3

REPORT INFORMATION
  Report Type: Spontaneous
  Country: US (occurrence: US)
  Receive Date: 20160924
  Receipt Date: 20160924
  Transmission Date: 20161109
  Serious: No
  Sender: FDA-Public Use
  Company Number: US-JAZZ-2016-US-010942

PATIENT
  Sex: Male

DRUGS (20)
  1. TRAZODONE [Concomitant]
     Active Substance: TRAZODONE HYDROCHLORIDE
  2. DEXEDRINE [Concomitant]
     Active Substance: DEXTROAMPHETAMINE SULFATE
  3. NAPROXEN. [Concomitant]
     Active Substance: NAPROXEN
  4. EFFEXOR XR [Concomitant]
     Active Substance: VENLAFAXINE HYDROCHLORIDE
  5. LASIX [Concomitant]
     Active Substance: FUROSEMIDE
  6. MELOXICAM. [Concomitant]
     Active Substance: MELOXICAM
  7. METHADONE HCL [Concomitant]
     Active Substance: METHADONE HYDROCHLORIDE
  8. CYMBALTA [Concomitant]
     Active Substance: DULOXETINE HYDROCHLORIDE
  9. VITAMIN D [Concomitant]
     Active Substance: CHOLECALCIFEROL
  10. LISINOPRIL. [Concomitant]
     Active Substance: LISINOPRIL
  11. MORPHINE SULFATE CR [Concomitant]
     Active Substance: MORPHINE SULFATE
  12. TESTOSTERONE CYPIONATE. [Concomitant]
     Active Substance: TESTOSTERONE CYPIONATE
  13. PREVACID [Concomitant]
     Active Substance: LANSOPRAZOLE
  14. XYREM [Suspect]
     Active Substance: SODIUM OXYBATE
     Indication: NARCOLEPSY
     Dosage: 2.25 G, BID
     Route: 048
     Dates: start: 200707, end: 200710
  15. ANDROGEL [Concomitant]
     Active Substance: TESTOSTERONE
  16. NEURONTIN [Concomitant]
     Active Substance: GABAPENTIN
  17. OMEPRAZOLE DR [Concomitant]
     Active Substance: OMEPRAZOLE
  18. XYREM [Suspect]
     Active Substance: SODIUM OXYBATE
     Dosage: DOSE ADJUSTMENTS
     Route: 048
     Dates: start: 200710, end: 201605
  19. XYREM [Suspect]
     Active Substance: SODIUM OXYBATE
     Dosage: 2.25 G, BID
     Route: 048
     Dates: start: 201605
  20. COREG [Concomitant]
     Active Substance: CARVEDILOL

REACTIONS (1)
  - Peripheral swelling [Unknown]
